FAERS Safety Report 5095406-4 (Version None)
Quarter: 2006Q3

REPORT INFORMATION
  Report Type: 
  Country: None (occurrence: None)
  Receive Date: 20060830
  Receipt Date: 20060814
  Transmission Date: 20061208
  Serious: Yes (Other)
  Sender: FDA-Public Use
  Company Number: 8018407

PATIENT
  Age: 24 Year
  Sex: Female

DRUGS (5)
  1. KEPPRA [Suspect]
     Indication: EPILEPSY
     Dosage: 1000 MG 1/D PO
     Route: 048
     Dates: start: 20050519, end: 20060221
  2. LAMICTAL [Suspect]
     Indication: EPILEPSY
     Dosage: 800 MG /D PO
     Route: 048
     Dates: start: 20010101
  3. LAMICTAL [Suspect]
     Indication: EPILEPSY
     Dosage: 500 MG
     Dates: start: 20010101
  4. PRENATAL VITAMINS /01549301/ [Concomitant]
  5. FOLATE [Concomitant]

REACTIONS (4)
  - ABORTION SPONTANEOUS [None]
  - ABORTION THREATENED [None]
  - DRUG EXPOSURE DURING PREGNANCY [None]
  - PREGNANCY [None]
